FAERS Safety Report 11545166 (Version 3)
Quarter: 2015Q4

REPORT INFORMATION
  Report Type: Spontaneous
  Country: JP (occurrence: JP)
  Receive Date: 20150924
  Receipt Date: 20151103
  Transmission Date: 20160304
  Serious: Yes (Hospitalization, Disabling)
  Sender: FDA-Public Use
  Company Number: JP-PFIZER INC-2015308676

PATIENT
  Age: 80 Year
  Sex: Female

DRUGS (23)
  1. MILLIS [Concomitant]
     Dosage: 1 DF, 1X/DAY
     Route: 062
  2. ALVESCO [Concomitant]
     Active Substance: CICLESONIDE
     Dosage: 1 DF, 2X/DAY
  3. DEXALTIN [Concomitant]
     Active Substance: DEXAMETHASONE
  4. REBAMIPIDE [Concomitant]
     Active Substance: REBAMIPIDE
     Dosage: 100 MG, 3X/DAY
     Route: 048
  5. SANMEL [Concomitant]
     Dosage: 20 MG, AS NEEDED
     Route: 048
  6. TROXSIN [Concomitant]
     Dosage: 100 MG, 3X/DAY
     Route: 048
  7. PREDNISOLONE. [Concomitant]
     Active Substance: PREDNISOLONE
     Dosage: 5 MG, 1X/DAY
     Route: 048
     Dates: start: 20050328
  8. BAYASPIRIN [Concomitant]
     Active Substance: ASPIRIN
     Dosage: 100 MG, 1X/DAY
     Route: 048
  9. FUROSEMIDE. [Concomitant]
     Active Substance: FUROSEMIDE
     Dosage: 40 MG, 2X/DAY
     Route: 048
  10. GOSHAJINKIGAN [Concomitant]
     Active Substance: HERBALS
     Dosage: 2.5 G, 3X/DAY
     Route: 048
  11. METHOTREXATE SODIUM. [Concomitant]
     Active Substance: METHOTREXATE SODIUM
     Dosage: 2 MG, 2X/DAY
     Route: 048
  12. ALENDRONATE [Concomitant]
     Active Substance: ALENDRONATE SODIUM
     Dosage: 35 MG, 1X/DAY
     Route: 048
  13. AZUNOL [Concomitant]
     Active Substance: SODIUM GUALENATE
  14. ASTAT [Concomitant]
  15. KARY UNI [Concomitant]
     Active Substance: PIRENOXINE
     Dosage: UNK, 3X/DAY
     Route: 047
  16. LYRICA [Suspect]
     Active Substance: PREGABALIN
     Dosage: 75 MG, 2X/DAY
     Route: 048
     Dates: start: 20121225
  17. ZALTOPROFEN [Concomitant]
     Active Substance: ZALTOPROFEN
     Dosage: 80 MG, 2X/DAY
     Route: 048
  18. DAI-KENCHU-TO [Concomitant]
     Active Substance: MALTOSE
     Dosage: 2.5 G, 3X/DAY
     Route: 048
  19. DICLOFENAC NA [Concomitant]
     Active Substance: DICLOFENAC SODIUM
     Dosage: 1 DF, 1X/DAY
     Route: 062
  20. PATANOL [Concomitant]
     Active Substance: OLOPATADINE HYDROCHLORIDE
     Dosage: UNK, 4X/DAY
     Route: 047
  21. CAMOTAT [Concomitant]
     Dosage: 100 MG, 3X/DAY
     Route: 048
  22. STANZOME [Concomitant]
     Active Substance: LANSOPRAZOLE
     Dosage: 30 MG, 1X/DAY
     Route: 048
  23. AMOBANTES [Concomitant]
     Dosage: 3.75 MG, 1X/DAY
     Route: 048

REACTIONS (2)
  - Fall [Recovered/Resolved with Sequelae]
  - Compression fracture [Recovered/Resolved with Sequelae]
